FAERS Safety Report 6265766-7 (Version None)
Quarter: 2009Q3

REPORT INFORMATION
  Report Type: 
  Country: None (occurrence: None)
  Receive Date: 20090713
  Receipt Date: 20090701
  Transmission Date: 20100115
  Serious: Yes (Death, Hospitalization, Other)
  Sender: FDA-Public Use
  Company Number: DE-JNJFOC-20061005779

PATIENT
  Age: 52 Year
  Sex: Female
  Weight: 72 kg

DRUGS (7)
  1. CAPECITABINE [Suspect]
     Indication: BREAST CANCER METASTATIC
     Route: 048
  2. CAPECITABINE [Suspect]
     Route: 048
  3. PASPERTIN [Concomitant]
  4. FRAGMIN [Concomitant]
  5. IMODIUM [Concomitant]
  6. CIPROBAY [Concomitant]
  7. PERIPLASMOL [Concomitant]

REACTIONS (5)
  - DIARRHOEA [None]
  - HAEMATEMESIS [None]
  - METASTASIS [None]
  - PULMONARY EMBOLISM [None]
  - VENOUS THROMBOSIS [None]
